FAERS Safety Report 4276712-X (Version None)
Quarter: 2004Q1

REPORT INFORMATION
  Report Type: 
  Country: None (occurrence: None)
  Receive Date: 20040120
  Receipt Date: 20040109
  Transmission Date: 20041129
  Serious: Yes (Hospitalization, Other)
  Sender: FDA-Public Use
  Company Number: DE-JNJFOC-20040101596

PATIENT
  Age: 86 Year
  Sex: Male

DRUGS (2)
  1. RISPERDAL [Suspect]
     Indication: DEMENTIA
     Dosage: 1 MG, 1 IN 1 DAY, ORAL; 2 MG, 1 IN 1 DAY, ORAL
     Route: 048
  2. RISPERDAL [Suspect]
     Indication: PSYCHOTIC DISORDER
     Dosage: 1 MG, 1 IN 1 DAY, ORAL; 2 MG, 1 IN 1 DAY, ORAL
     Route: 048

REACTIONS (6)
  - ARRHYTHMIA [None]
  - ATRIAL TACHYCARDIA [None]
  - ATRIOVENTRICULAR BLOCK [None]
  - AV DISSOCIATION [None]
  - HYPERTENSION [None]
  - PSYCHOTIC DISORDER [None]
